FAERS Safety Report 5197635-8 (Version None)
Quarter: 2006Q4

REPORT INFORMATION
  Report Type: 
  Country: None (occurrence: None)
  Receive Date: 20061228
  Receipt Date: 20061212
  Transmission Date: 20070319
  Serious: Yes (Other)
  Sender: FDA-Public Use
  Company Number: S06-FRA-05365-01

PATIENT
  Age: 44 Year
  Sex: Male

DRUGS (4)
  1. SEROPLEX (ESCITALOPRAM) [Suspect]
     Dates: start: 20060901, end: 20061201
  2. LAMICTAL [Concomitant]
  3. KEPPRA [Concomitant]
  4. ZOLPIDEM TARTRATE [Concomitant]

REACTIONS (1)
  - EPILEPSY [None]
